FAERS Safety Report 16241853 (Version 3)
Quarter: 2020Q1

REPORT INFORMATION
  Report Type: Report from Study
  Country: US (occurrence: US)
  Receive Date: 20190426
  Receipt Date: 20200127
  Transmission Date: 20200409
  Serious: Yes (Hospitalization, Other)
  Sender: FDA-Public Use
  Company Number: US-ROCHE-2307366

PATIENT
  Age: 61 Year
  Sex: Male
  Weight: 104.42 kg

DRUGS (9)
  1. AMPYRA [Concomitant]
     Active Substance: DALFAMPRIDINE
     Dosage: ONGOING : YES,STARTED ABOUT 18 MOTHS AGO
     Route: 048
  2. ATORVASTATIN [Concomitant]
     Active Substance: ATORVASTATIN
     Indication: BLOOD CHOLESTEROL INCREASED
     Dosage: ONGOING : YES,STARTED ABOUT 5 YEARS AGO
     Route: 048
  3. QUETIAPINE. [Concomitant]
     Active Substance: QUETIAPINE
     Indication: INSOMNIA
     Dosage: ONGOING : YES
     Route: 048
  4. GABAPENTIN. [Concomitant]
     Active Substance: GABAPENTIN
     Indication: PAIN
     Dosage: ONGOING : YES STARTED ABOUT 4 TO 5 YRS
     Route: 048
  5. ZOLPIDEM [Concomitant]
     Active Substance: ZOLPIDEM TARTRATE
     Indication: INSOMNIA
     Dosage: ONGOING : YES,EXTENDED RELEASE STARTED ABOUT 4 YEARS AGO
     Route: 048
  6. TIZANIDINE. [Concomitant]
     Active Substance: TIZANIDINE
     Indication: MUSCLE SPASMS
     Dosage: ONGOING : YES,STARTED ABOUT 5 YEARS AGO
     Route: 048
  7. BACLOFEN. [Concomitant]
     Active Substance: BACLOFEN
     Indication: MUSCLE SPASMS
     Dosage: ONGOING : YES
     Route: 048
  8. LISINOPRIL. [Concomitant]
     Active Substance: LISINOPRIL
     Indication: HYPERTENSION
     Dosage: ONGOING : YES STARTED ABOUT 5 YEARS AGO
     Route: 048
  9. OCREVUS [Suspect]
     Active Substance: OCRELIZUMAB
     Indication: RELAPSING MULTIPLE SCLEROSIS
     Dosage: NEXT INFUSION ON 31/AUG/2018?ONGOING YES
     Route: 042
     Dates: start: 20180813

REACTIONS (12)
  - Penile erosion [Not Recovered/Not Resolved]
  - Drug ineffective [Unknown]
  - Rhabdomyolysis [Recovered/Resolved]
  - Infection [Recovering/Resolving]
  - Sepsis [Recovered/Resolved]
  - Acute kidney injury [Recovered/Resolved]
  - Urinary tract infection [Recovered/Resolved]
  - Localised infection [Recovering/Resolving]
  - Troponin increased [Recovered/Resolved]
  - Mental status changes [Recovered/Resolved]
  - Urethral injury [Recovered/Resolved]
  - Off label use [Unknown]

NARRATIVE: CASE EVENT DATE: 20190415
